FAERS Safety Report 5878834-6 (Version None)
Quarter: 2008Q3

REPORT INFORMATION
  Report Type: 
  Country: None (occurrence: None)
  Receive Date: 20080910
  Receipt Date: 20080627
  Transmission Date: 20090109
  Serious: Yes (Hospitalization, Other)
  Sender: FDA-Public Use
  Company Number: WAES0804USA04747

PATIENT
  Age: 64 Year
  Sex: Male

DRUGS (12)
  1. INDOMETHACIN [Suspect]
     Dosage: 15 MG, TID; PO
     Route: 048
     Dates: start: 20080201, end: 20080218
  2. TAB 0653A-BLINDED THERAPY [Suspect]
     Indication: ACUTE CORONARY SYNDROME
     Dates: start: 20060419
  3. ASPIRIN [Concomitant]
  4. LISINOPRIL [Concomitant]
  5. METOPROLOL TARTRATE [Concomitant]
  6. CLOPIDOGREL [Concomitant]
  7. GLIPIZIDE [Concomitant]
  8. GUANFACINE HYDROCHLORIDE [Concomitant]
  9. FUROSEMIDE [Concomitant]
  10. ALLOPURINOL [Concomitant]
  11. DUONEB [Concomitant]
  12. LEVOFLOXACIN [Concomitant]

REACTIONS (2)
  - RENAL FAILURE ACUTE [None]
  - URINARY TRACT INFECTION [None]
